FAERS Safety Report 5805952-0 (Version None)
Quarter: 2008Q3

REPORT INFORMATION
  Report Type: 
  Country: None (occurrence: None)
  Receive Date: 20080710
  Receipt Date: 20080630
  Transmission Date: 20090109
  Serious: Yes (Other)
  Sender: FDA-Public Use
  Company Number: US-ROCHE-573365

PATIENT
  Sex: Female
  Weight: 83.9 kg

DRUGS (1)
  1. CAPECITABINE [Suspect]
     Indication: BREAST CANCER
     Route: 065

REACTIONS (2)
  - DRUG INEFFECTIVE [None]
  - METASTASES TO CENTRAL NERVOUS SYSTEM [None]
